FAERS Safety Report 7461794-4 (Version None)
Quarter: 2011Q2

REPORT INFORMATION
  Report Type: 
  Country: None (occurrence: None)
  Receive Date: 20110506
  Receipt Date: 20110419
  Transmission Date: 20111010
  Serious: Yes (Other)
  Sender: FDA-Public Use
  Company Number: US-BAYER-200939337NA

PATIENT
  Sex: Male

DRUGS (8)
  1. GLUCOPHAGE [Concomitant]
     Dosage: 500 MG, UNK
     Dates: start: 19980101
  2. LIPITOR [Concomitant]
     Dosage: 20 MG, UNK
     Dates: start: 19990101
  3. LOTENSIN [Concomitant]
     Dosage: 10 MG, UNK
     Dates: start: 19980101
  4. BAYCOL [Concomitant]
     Dosage: 0.3 MG, UNK
     Dates: start: 19980101
  5. TRASYLOL [Suspect]
     Indication: PRODUCT USED FOR UNKNOWN INDICATION
     Route: 042
     Dates: start: 20050919
  6. DICLOXACILLIN [Concomitant]
     Dosage: 250 MG, UNK
     Dates: start: 20050624, end: 20050630
  7. GLIPIZIDE [Concomitant]
     Dosage: 5 MG, UNK
     Dates: start: 19980101
  8. GABAPENTIN [Concomitant]
     Dosage: 300 MG, TID
     Dates: start: 20050906, end: 20050916

REACTIONS (11)
  - EMOTIONAL DISTRESS [None]
  - FEAR [None]
  - PAIN [None]
  - RENAL IMPAIRMENT [None]
  - INJURY [None]
  - UNEVALUABLE EVENT [None]
  - STRESS [None]
  - ANHEDONIA [None]
  - RENAL FAILURE [None]
  - ANXIETY [None]
  - RENAL INJURY [None]
